FAERS Safety Report 16025630 (Version 1)
Quarter: 2019Q1

REPORT INFORMATION
  Report Type: Spontaneous
  Country: FR (occurrence: FR)
  Receive Date: 20190302
  Receipt Date: 20190302
  Transmission Date: 20190418
  Serious: Yes (Other)
  Sender: FDA-Public Use
  Company Number: FR-AUROBINDO-AUR-APL-2018-000338

PATIENT

DRUGS (20)
  1. CYTARABINE. [Suspect]
     Active Substance: CYTARABINE
     Indication: STEM CELL TRANSPLANT
     Dosage: UNK UNK, CYCLICAL
     Route: 065
  2. CYTARABINE. [Suspect]
     Active Substance: CYTARABINE
     Indication: IMMUNOSUPPRESSANT DRUG THERAPY
  3. CARMUSTINE. [Suspect]
     Active Substance: CARMUSTINE
     Indication: BONE MARROW CONDITIONING REGIMEN
     Dosage: UNK UNK, CYCLICAL
     Route: 065
  4. MELPHALAN. [Suspect]
     Active Substance: MELPHALAN
     Indication: BONE MARROW CONDITIONING REGIMEN
     Dosage: UNK UNK, CYCLICAL
     Route: 065
  5. MELPHALAN. [Suspect]
     Active Substance: MELPHALAN
     Indication: MANTLE CELL LYMPHOMA
  6. CYTARABINE. [Suspect]
     Active Substance: CYTARABINE
     Indication: MANTLE CELL LYMPHOMA
  7. DEXAMETHASONE. [Suspect]
     Active Substance: DEXAMETHASONE
     Indication: IMMUNOSUPPRESSANT DRUG THERAPY
  8. VEPESIDE [Suspect]
     Active Substance: ETOPOSIDE
     Indication: BONE MARROW CONDITIONING REGIMEN
  9. ETOPOSIDE. [Suspect]
     Active Substance: ETOPOSIDE
     Indication: BONE MARROW CONDITIONING REGIMEN
     Dosage: UNK UNK, CYCLICAL
     Route: 065
  10. OXALIPLATIN. [Suspect]
     Active Substance: OXALIPLATIN
     Indication: STEM CELL TRANSPLANT
  11. DEXAMETHASONE. [Suspect]
     Active Substance: DEXAMETHASONE
     Indication: MANTLE CELL LYMPHOMA
  12. OXALIPLATIN. [Suspect]
     Active Substance: OXALIPLATIN
     Indication: IMMUNOSUPPRESSANT DRUG THERAPY
     Dosage: UNK UNK, CYCLICAL
     Route: 065
  13. RITUXIMAB. [Suspect]
     Active Substance: RITUXIMAB
     Indication: MANTLE CELL LYMPHOMA
  14. VEPESIDE [Suspect]
     Active Substance: ETOPOSIDE
     Indication: MANTLE CELL LYMPHOMA
     Dosage: UNK UNK, CYCLICAL
     Route: 065
  15. OXALIPLATIN. [Suspect]
     Active Substance: OXALIPLATIN
     Indication: MANTLE CELL LYMPHOMA
  16. CARMUSTINE. [Suspect]
     Active Substance: CARMUSTINE
     Indication: MANTLE CELL LYMPHOMA
  17. DEXAMETHASONE. [Suspect]
     Active Substance: DEXAMETHASONE
     Indication: STEM CELL TRANSPLANT
     Dosage: UNK UNK, CYCLICAL
     Route: 065
  18. ETOPOSIDE. [Suspect]
     Active Substance: ETOPOSIDE
     Indication: MANTLE CELL LYMPHOMA
  19. RITUXIMAB. [Suspect]
     Active Substance: RITUXIMAB
     Indication: IMMUNOSUPPRESSANT DRUG THERAPY
     Dosage: UNK UNK, CYCLICAL
     Route: 065
  20. RITUXIMAB. [Suspect]
     Active Substance: RITUXIMAB
     Indication: STEM CELL TRANSPLANT

REACTIONS (6)
  - Febrile neutropenia [Recovered/Resolved]
  - Hepatitis acute [Unknown]
  - Venoocclusive liver disease [Recovered/Resolved]
  - Weight increased [Unknown]
  - Abdominal pain [Unknown]
  - Toxicity to various agents [Recovered/Resolved]
